FAERS Safety Report 7637896-6 (Version None)
Quarter: 2011Q3

REPORT INFORMATION
  Report Type: 
  Country: None (occurrence: None)
  Receive Date: 20110720
  Receipt Date: 20110705
  Transmission Date: 20111222
  Serious: Yes (Hospitalization)
  Sender: FDA-Public Use
  Company Number: AUR-APL-2011-03664

PATIENT
  Age: 67 Year
  Sex: Female

DRUGS (2)
  1. LISINOPRIL [Suspect]
     Indication: PRODUCT USED FOR UNKNOWN INDICATION
     Dosage: 10 MG (10 MG,1 IN 1 D)
     Dates: start: 20050101
  2. HYDROCHLOROTHIAZIDE [Concomitant]

REACTIONS (12)
  - ABDOMINAL PAIN [None]
  - NAUSEA [None]
  - LEUKOCYTOSIS [None]
  - GASTROINTESTINAL INFECTION [None]
  - VOMITING [None]
  - DIVERTICULUM [None]
  - DIARRHOEA [None]
  - ASCITES [None]
  - EOSINOPHIL COUNT INCREASED [None]
  - GASTROINTESTINAL INFLAMMATION [None]
  - SMALL BOWEL ANGIOEDEMA [None]
  - COLONIC POLYP [None]
